FAERS Safety Report 19238268 (Version 1)
Quarter: 2021Q2

REPORT INFORMATION
  Report Type: Spontaneous
  Country: US (occurrence: US)
  Receive Date: 20210510
  Receipt Date: 20210510
  Transmission Date: 20210717
  Serious: Yes (Other)
  Sender: FDA-Public Use
  Company Number: None

PATIENT
  Sex: Female

DRUGS (2)
  1. ZOMIG [Suspect]
     Active Substance: ZOLMITRIPTAN
  2. SUMATRIPTAN 100MG [Suspect]
     Active Substance: SUMATRIPTAN

REACTIONS (4)
  - Vomiting [None]
  - Headache [None]
  - Photosensitivity reaction [None]
  - Drug ineffective [None]
